FAERS Safety Report 24236429 (Version 1)
Quarter: 2024Q3

REPORT INFORMATION
  Report Type: Spontaneous
  Country: GB (occurrence: GB)
  Receive Date: 20240822
  Receipt Date: 20240822
  Transmission Date: 20241016
  Serious: Yes (Other)
  Sender: CELLTRION
  Company Number: GB-CELLTRION INC.-2024GB019776

PATIENT

DRUGS (1)
  1. YUFLYMA [Suspect]
     Active Substance: ADALIMUMAB-AATY
     Indication: Rheumatoid arthritis
     Dosage: 40MG FOR INJECTION PEN
     Route: 058
     Dates: start: 202403

REACTIONS (4)
  - Surgery [Unknown]
  - Infection [Unknown]
  - Product prescribing issue [Unknown]
  - Intentional dose omission [Unknown]
